FAERS Safety Report 15110500 (Version 2)
Quarter: 2018Q4

REPORT INFORMATION
  Report Type: Spontaneous
  Country: DE (occurrence: DE)
  Receive Date: 20180705
  Receipt Date: 20181026
  Transmission Date: 20190204
  Serious: No
  Sender: FDA-Public Use
  Company Number: PHHY2018DE034244

PATIENT
  Age: 65 Year
  Sex: Male
  Weight: 75 kg

DRUGS (18)
  1. CALCIUM FOLINATE [Concomitant]
     Active Substance: LEUCOVORIN CALCIUM
     Dosage: 378 MG, UNK
     Route: 042
     Dates: start: 20180326, end: 20180326
  2. CALCIUM FOLINATE [Concomitant]
     Active Substance: LEUCOVORIN CALCIUM
     Indication: COLON CANCER
     Dosage: 378 MG, UNK
     Route: 042
     Dates: start: 20180423, end: 20180423
  3. FLUOROURACIL. [Concomitant]
     Active Substance: FLUOROURACIL
     Indication: COLON CANCER
     Dosage: 6048 MG, UNK
     Route: 042
     Dates: start: 20180423, end: 20180425
  4. PALONOSETRON. [Concomitant]
     Active Substance: PALONOSETRON HYDROCHLORIDE
     Dosage: 250 UG, UNK
     Route: 042
     Dates: start: 20180326
  5. BEVACIZUMAB. [Concomitant]
     Active Substance: BEVACIZUMAB
     Dosage: 375 MG, UNK
     Route: 042
     Dates: start: 20180326, end: 20180326
  6. DEXA [Concomitant]
     Indication: PRODUCT USED FOR UNKNOWN INDICATION
     Dosage: 12 MG, UNK
     Route: 042
     Dates: start: 20180423
  7. EMEND [Concomitant]
     Active Substance: APREPITANT
     Dosage: 125 MG, UNK
     Route: 048
     Dates: start: 20180326
  8. IRINOTECAN FRESENIUS [Concomitant]
     Active Substance: IRINOTECAN
     Dosage: 155 MG, UNK
     Route: 042
     Dates: start: 20180326, end: 20180326
  9. DEXA [Concomitant]
     Dosage: 8 MG, UNK
     Route: 042
     Dates: start: 20180326
  10. EMEND [Concomitant]
     Active Substance: APREPITANT
     Dosage: 8 MG, UNK
     Route: 048
     Dates: start: 20180327
  11. PALONOSETRON. [Concomitant]
     Active Substance: PALONOSETRON HYDROCHLORIDE
     Indication: PRODUCT USED FOR UNKNOWN INDICATION
     Dosage: 250 UG, UNK
     Route: 048
     Dates: start: 20180423
  12. OXALIPLATIN HEXAL [Suspect]
     Active Substance: OXALIPLATIN
     Dosage: 50 ML, (AROUNG 8 MG)
     Route: 042
     Dates: start: 20180423, end: 20180423
  13. OXALIPLATIN HEXAL [Suspect]
     Active Substance: OXALIPLATIN
     Dosage: UNK
     Route: 042
     Dates: start: 20180409, end: 20180409
  14. BEVACIZUMAB. [Concomitant]
     Active Substance: BEVACIZUMAB
     Indication: COLON CANCER
     Dosage: 375 MG, UNK
     Route: 042
     Dates: start: 20180423, end: 20180423
  15. IRINOTECAN FRESENIUS [Concomitant]
     Active Substance: IRINOTECAN
     Indication: COLON CANCER
     Dosage: 155 MG, UNK
     Route: 042
     Dates: start: 20180423, end: 20180423
  16. FLUOROURACIL. [Concomitant]
     Active Substance: FLUOROURACIL
     Dosage: 6048 MG, UNK
     Route: 042
     Dates: start: 20180326, end: 20180326
  17. OXALIPLATIN HEXAL [Suspect]
     Active Substance: OXALIPLATIN
     Indication: COLON CANCER
     Dosage: 80 MG, UNK
     Route: 042
     Dates: start: 20180326, end: 20180326
  18. EMEND [Concomitant]
     Active Substance: APREPITANT
     Indication: PRODUCT USED FOR UNKNOWN INDICATION
     Dosage: 125 MG, UNK
     Route: 048
     Dates: start: 20180423

REACTIONS (8)
  - Nausea [Recovered/Resolved]
  - Eye irritation [Recovered/Resolved]
  - Pruritus [Recovered/Resolved]
  - Hypotension [Recovered/Resolved]
  - Blood pressure decreased [Recovered/Resolved]
  - Malaise [Recovered/Resolved]
  - Lacrimation increased [Recovered/Resolved]
  - Erythema [Recovered/Resolved]

NARRATIVE: CASE EVENT DATE: 20180326
